FAERS Safety Report 8661000 (Version 2)
Quarter: 2013Q2

REPORT INFORMATION
  Report Type: Spontaneous
  Country: ES (occurrence: ES)
  Receive Date: 20120711
  Receipt Date: 20130510
  Transmission Date: 20140414
  Serious: Yes (Life-Threatening, Hospitalization, Other)
  Sender: FDA-Public Use
  Company Number: ES-ABBOTT-12P-144-0953806-00

PATIENT
  Age: 55 Year
  Sex: Male

DRUGS (6)
  1. HUMIRA 40 MG/ 0.8 ML PRE-FILLED SYRINGE [Suspect]
     Indication: SPONDYLITIS
     Route: 058
     Dates: start: 20110404, end: 20120615
  2. GOLIMUMAB [Suspect]
     Indication: PSORIATIC ARTHROPATHY
  3. METHOTREXATE [Concomitant]
     Indication: SPONDYLITIS
     Dosage: UNTIL 25MG
     Route: 042
  4. LEFLUNOMIDE [Concomitant]
     Indication: SPONDYLITIS
     Route: 048
  5. ETORICOXIB [Concomitant]
     Indication: SPONDYLITIS
  6. PARACETAMOL W/TRAMADOL [Concomitant]
     Indication: SPONDYLITIS
     Dosage: 325/37.5 MG
     Route: 048

REACTIONS (14)
  - Guillain-Barre syndrome [Recovered/Resolved with Sequelae]
  - Inappropriate antidiuretic hormone secretion [Recovered/Resolved with Sequelae]
  - Respiratory failure [Recovered/Resolved with Sequelae]
  - Myalgia [Recovering/Resolving]
  - Muscle tightness [Recovering/Resolving]
  - Joint stiffness [Recovering/Resolving]
  - Paresis [Recovered/Resolved with Sequelae]
  - Paresis [Recovered/Resolved with Sequelae]
  - Hyperaesthesia [Recovered/Resolved with Sequelae]
  - Autonomic neuropathy [Recovered/Resolved with Sequelae]
  - Urinary retention [Recovered/Resolved with Sequelae]
  - Hyperhidrosis [Recovered/Resolved with Sequelae]
  - Pain in extremity [Recovering/Resolving]
  - Drug ineffective [Recovered/Resolved]
